FAERS Safety Report 5452190-X (Version None)
Quarter: 2007Q3

REPORT INFORMATION
  Report Type: 
  Country: None (occurrence: None)
  Receive Date: 20070914
  Receipt Date: 20070905
  Transmission Date: 20080115
  Serious: Yes (Hospitalization, Other)
  Sender: FDA-Public Use
  Company Number: PHBS2007NO14299

PATIENT
  Sex: Male

DRUGS (1)
  1. LEPONEX [Suspect]
     Indication: SCHIZOPHRENIA, PARANOID TYPE
     Dosage: 550 MG, UNK

REACTIONS (9)
  - ABDOMINAL PAIN [None]
  - C-REACTIVE PROTEIN INCREASED [None]
  - INCONTINENCE [None]
  - LYMPHOCYTE COUNT DECREASED [None]
  - PYELONEPHRITIS [None]
  - PYREXIA [None]
  - RENAL DISORDER [None]
  - SURGERY [None]
  - URINARY RETENTION [None]
